FAERS Safety Report 6115174-4 (Version None)
Quarter: 2009Q1

REPORT INFORMATION
  Report Type: 
  Country: None (occurrence: None)
  Receive Date: 20090313
  Receipt Date: 20090310
  Transmission Date: 20090719
  Serious: Yes (Hospitalization)
  Sender: FDA-Public Use
  Company Number: US-ASTRAZENECA-2009UW06408

PATIENT
  Sex: Female

DRUGS (1)
  1. MERREM I.V. [Suspect]
     Route: 042

REACTIONS (1)
  - OVERDOSE [None]
